FAERS Safety Report 18600445 (Version 2)
Quarter: 2020Q4

REPORT INFORMATION
  Report Type: Report from Study
  Country: FR (occurrence: FR)
  Receive Date: 20201210
  Receipt Date: 20201223
  Transmission Date: 20210114
  Serious: Yes (Hospitalization)
  Sender: FDA-Public Use
  Company Number: FR-PFIZER INC-2020480288

PATIENT
  Age: 50 Year
  Sex: Male
  Weight: 73 kg

DRUGS (3)
  1. CYTARABINE. [Suspect]
     Active Substance: CYTARABINE
     Dosage: 5600 MG
     Route: 042
     Dates: start: 20201103, end: 20201104
  2. METHOTREXATE. [Suspect]
     Active Substance: METHOTREXATE
  3. TASIGNA [Suspect]
     Active Substance: NILOTINIB

REACTIONS (2)
  - Blood creatinine increased [Not Recovered/Not Resolved]
  - Renal failure [Not Recovered/Not Resolved]

NARRATIVE: CASE EVENT DATE: 20201104
